APPROVED DRUG PRODUCT: BRIMONIDINE TARTRATE AND TIMOLOL MALEATE
Active Ingredient: BRIMONIDINE TARTRATE; TIMOLOL MALEATE
Strength: 0.2%;EQ 0.5% BASE
Dosage Form/Route: SOLUTION/DROPS;OPHTHALMIC
Application: A091086 | Product #001 | TE Code: AB
Applicant: SENTISS AG
Approved: Oct 31, 2022 | RLD: No | RS: No | Type: RX